FAERS Safety Report 14632734 (Version 1)
Quarter: 2018Q1

REPORT INFORMATION
  Report Type: Spontaneous
  Country: DE (occurrence: DE)
  Receive Date: 20180313
  Receipt Date: 20180313
  Transmission Date: 20180509
  Serious: Yes (Other)
  Sender: FDA-Public Use
  Company Number: DE-PFIZER INC-2018107193

PATIENT
  Age: 65 Year
  Sex: Male

DRUGS (2)
  1. APYDAN [Suspect]
     Active Substance: OXCARBAZEPINE
     Indication: TRIGEMINAL NEURALGIA
     Dosage: UNK
  2. RAMIPRIL. [Suspect]
     Active Substance: RAMIPRIL
     Indication: HYPERTENSION
     Dosage: 300 MG, DAILY
     Route: 048
     Dates: start: 20170901, end: 20171115

REACTIONS (3)
  - Respiratory distress [Recovering/Resolving]
  - Chest discomfort [Recovering/Resolving]
  - Off label use [Recovering/Resolving]
